FAERS Safety Report 11683665 (Version 1)
Quarter: 2015Q4

REPORT INFORMATION
  Report Type: Spontaneous
  Country: US (occurrence: US)
  Receive Date: 20151029
  Receipt Date: 20151029
  Transmission Date: 20160304
  Serious: No
  Sender: FDA-Public Use
  Company Number: US-ROCHE-1543513

PATIENT
  Age: 8 Year
  Sex: Female

DRUGS (12)
  1. TOBRAMYCIN. [Concomitant]
     Active Substance: TOBRAMYCIN
     Indication: PRIMARY CILIARY DYSKINESIA
     Dosage: 300 MG/4ML. 28 DAYS ON AND 28 OFF
     Route: 065
  2. ERYTHROMYCIN. [Concomitant]
     Active Substance: ERYTHROMYCIN
     Indication: IMPAIRED GASTRIC EMPTYING
     Route: 065
  3. NASONEX [Concomitant]
     Active Substance: MOMETASONE FUROATE
     Dosage: AS NEEDED, HAS BEEN ON PULMOZYME FOR 2 YEARS
     Route: 065
  4. ADVAIR HFA [Concomitant]
     Active Substance: FLUTICASONE PROPIONATE\SALMETEROL XINAFOATE
     Indication: PRIMARY CILIARY DYSKINESIA
     Dosage: 2 PUFFS 115/21 UNITS UNKNOWN
     Route: 065
  5. OMEPRAZOLE. [Concomitant]
     Active Substance: OMEPRAZOLE
     Route: 065
  6. PULMOZYME [Suspect]
     Active Substance: DORNASE ALFA
     Indication: PRIMARY CILIARY DYSKINESIA
     Dosage: LAST DOSE RECEIVED ON 29/DEC/2014 PRIOR TO ADVESRE EVENT
     Route: 065
  7. PREDNISONE. [Concomitant]
     Active Substance: PREDNISONE
     Indication: PRIMARY CILIARY DYSKINESIA
     Dosage: 15 MG/5 ML
     Route: 065
  8. ADVAIR HFA [Concomitant]
     Active Substance: FLUTICASONE PROPIONATE\SALMETEROL XINAFOATE
     Indication: ASTHMA
  9. HYPERTONIC SALINE [Concomitant]
     Route: 065
  10. PULMOZYME [Suspect]
     Active Substance: DORNASE ALFA
     Indication: ASTHMA
  11. XOPENEX HFA [Concomitant]
     Active Substance: LEVALBUTEROL TARTRATE
     Indication: PRIMARY CILIARY DYSKINESIA
     Dosage: 2 PUFFS TWICE A DAY AND AS NEEDED
     Route: 065
  12. ZYRTEC [Concomitant]
     Active Substance: CETIRIZINE HYDROCHLORIDE
     Dosage: AS NEEDED
     Route: 065

REACTIONS (4)
  - Productive cough [Not Recovered/Not Resolved]
  - Pulmonary function test abnormal [Not Recovered/Not Resolved]
  - Cough [Not Recovered/Not Resolved]
  - Wheezing [Not Recovered/Not Resolved]

NARRATIVE: CASE EVENT DATE: 20150213
